FAERS Safety Report 9076163 (Version 1)
Quarter: 2013Q1

REPORT INFORMATION
  Report Type: Report from Study
  Country: US (occurrence: US)
  Receive Date: 20130129
  Receipt Date: 20130129
  Transmission Date: 20140127
  Serious: No
  Sender: FDA-Public Use
  Company Number: US-ABBOTT-12P-163-0931656-00

PATIENT
  Sex: Male

DRUGS (7)
  1. HUMIRA 40 MG/0.8 ML PEN [Suspect]
     Indication: PSORIASIS
     Dosage: ONCE
     Dates: start: 20120409, end: 20120409
  2. HUMIRA 40 MG/0.8 ML PEN [Suspect]
     Dates: start: 20120416
  3. HUMIRA 40 MG/0.8 ML PEN [Suspect]
     Dates: start: 20120514
  4. UNKNOWN TOPICAL OINTMENTS [Concomitant]
     Indication: PSORIASIS
  5. MOTRIN [Concomitant]
     Indication: PAIN
  6. MOTRIN [Concomitant]
     Indication: PAIN
  7. MOTRIN [Concomitant]
     Indication: MUSCULOSKELETAL STIFFNESS

REACTIONS (4)
  - Dysphonia [Not Recovered/Not Resolved]
  - Nasal congestion [Not Recovered/Not Resolved]
  - Upper-airway cough syndrome [Not Recovered/Not Resolved]
  - Sinus disorder [Not Recovered/Not Resolved]
